FAERS Safety Report 10855782 (Version 1)
Quarter: 2015Q1

REPORT INFORMATION
  Report Type: Spontaneous
  Country: US (occurrence: None)
  Receive Date: 20150218
  Receipt Date: 20150218
  Transmission Date: 20150721
  Serious: Yes (Other)
  Sender: FDA-Public Use
  Company Number: None

PATIENT
  Age: 14 Year
  Sex: Female
  Weight: 31.75 kg

DRUGS (1)
  1. LA ROCHE POSAY LABORATOIRE DERMATOLOGIQUEEFFACLAR DUO EFFACLAR DUO [Suspect]
     Active Substance: BENZOYL PEROXIDE
     Indication: ACNE
     Route: 061
     Dates: start: 20150214, end: 20150215

REACTIONS (3)
  - Application site discolouration [None]
  - Hyperaesthesia [None]
  - Application site pain [None]

NARRATIVE: CASE EVENT DATE: 20150215
